FAERS Safety Report 22152405 (Version 1)
Quarter: 2023Q1

REPORT INFORMATION
  Report Type: Report from Study
  Country: CN (occurrence: CN)
  Receive Date: 20230329
  Receipt Date: 20230329
  Transmission Date: 20230418
  Serious: Yes (Hospitalization, Other)
  Sender: FDA-Public Use
  Company Number: CN-BIOGEN-2023BI01195988

PATIENT
  Age: 13 Year
  Sex: Female
  Weight: 27 kg

DRUGS (16)
  1. SPINRAZA [Suspect]
     Active Substance: NUSINERSEN
     Indication: Spinal muscular atrophy
     Route: 050
     Dates: start: 20220110
  2. SPINRAZA [Suspect]
     Active Substance: NUSINERSEN
     Route: 050
     Dates: start: 20220124
  3. SPINRAZA [Suspect]
     Active Substance: NUSINERSEN
     Route: 050
     Dates: start: 20220208
  4. SPINRAZA [Suspect]
     Active Substance: NUSINERSEN
     Route: 050
     Dates: start: 20220318
  5. SPINRAZA [Suspect]
     Active Substance: NUSINERSEN
     Route: 050
     Dates: start: 20220713
  6. SPINRAZA [Suspect]
     Active Substance: NUSINERSEN
     Route: 050
     Dates: start: 20221115
  7. SPINRAZA [Suspect]
     Active Substance: NUSINERSEN
     Route: 050
     Dates: start: 20230314
  8. ORAL REHYDRATION SALT [Concomitant]
     Indication: Fluid replacement
     Route: 050
  9. BUDESONIDE [Concomitant]
     Active Substance: BUDESONIDE
     Indication: Pneumonia
     Route: 050
     Dates: start: 20221216
  10. IPRATROPIUM BROMIDE [Concomitant]
     Active Substance: IPRATROPIUM BROMIDE
     Indication: Pneumonia
     Route: 050
     Dates: start: 20221216
  11. kangfuxin (tranditional chinese medicine) [Concomitant]
     Indication: Pneumonia
     Route: 050
     Dates: start: 20221216, end: 20221227
  12. CEFOTAXIME [Concomitant]
     Active Substance: CEFOTAXIME SODIUM
     Indication: Pneumonia
     Route: 050
     Dates: start: 20221216, end: 20221227
  13. AMBROXOL [Concomitant]
     Active Substance: AMBROXOL
     Indication: Pneumonia
     Route: 050
     Dates: start: 20221217, end: 20221229
  14. kaihoujian  (tranditional chinese medicine) [Concomitant]
     Indication: Pneumonia
     Route: 050
  15. FLUCONAZOLE [Concomitant]
     Active Substance: FLUCONAZOLE
     Indication: Pneumonia
     Route: 050
     Dates: start: 20221223, end: 20221227
  16. FLUCONAZOLE [Concomitant]
     Active Substance: FLUCONAZOLE
     Route: 050
     Dates: start: 20221230, end: 20230101

REACTIONS (3)
  - Gastritis [Recovered/Resolved]
  - Pancreatitis acute [Recovered/Resolved]
  - COVID-19 [Recovered/Resolved]

NARRATIVE: CASE EVENT DATE: 20221215
